FAERS Safety Report 16761487 (Version 1)
Quarter: 2019Q3

REPORT INFORMATION
  Report Type: Spontaneous
  Country: FR (occurrence: FR)
  Receive Date: 20190830
  Receipt Date: 20190830
  Transmission Date: 20191005
  Serious: Yes (Hospitalization)
  Sender: FDA-Public Use
  Company Number: FR-SANOFI-AVENTIS-2012SA048508

PATIENT
  Age: 70 Year
  Sex: Male

DRUGS (3)
  1. RIFADINE [RIFAMPICIN] [Concomitant]
     Active Substance: RIFAMPIN
     Dosage: UNK UNK,UNK
     Route: 042
  2. LOVENOX [Suspect]
     Active Substance: ENOXAPARIN SODIUM
     Indication: PRODUCT USED FOR UNKNOWN INDICATION
     Dosage: 4000 IU,BID
     Route: 058
     Dates: start: 20120606, end: 20120613
  3. FLUINDIONE [Suspect]
     Active Substance: FLUINDIONE
     Dosage: 1 DF, QD
     Dates: start: 201205, end: 20190507

REACTIONS (2)
  - Red blood cell count decreased [Not Recovered/Not Resolved]
  - Post procedural haematoma [Recovering/Resolving]

NARRATIVE: CASE EVENT DATE: 20120507
